FAERS Safety Report 16207557 (Version 3)
Quarter: 2024Q2

REPORT INFORMATION
  Report Type: Report from Study
  Country: GB (occurrence: GB)
  Receive Date: 20190417
  Receipt Date: 20240531
  Transmission Date: 20240716
  Serious: Yes (Death, Hospitalization, Disabling, Other)
  Sender: FDA-Public Use
  Company Number: GB-CELGENE-GBR-2016080058

PATIENT

DRUGS (9)
  1. DEXAMETHASONE [Suspect]
     Active Substance: DEXAMETHASONE
     Indication: Plasma cell myeloma
     Dosage: 8 MG, WEEKLY, : CYCLE 4
     Route: 065
     Dates: start: 20160702, end: 20160723
  2. DEXAMETHASONE [Suspect]
     Active Substance: DEXAMETHASONE
     Dosage: 6 MG, WEEKLY, CYCLE 1
     Route: 065
     Dates: start: 20160318, end: 20160408
  3. DEXAMETHASONE [Suspect]
     Active Substance: DEXAMETHASONE
     Dosage: 8 MG, CYCLE 3;
     Route: 065
     Dates: start: 20160513
  4. POMALIDOMIDE [Suspect]
     Active Substance: POMALIDOMIDE
     Indication: Plasma cell myeloma
     Dosage: 84 MG
     Route: 048
     Dates: start: 20160513, end: 20160520
  5. POMALIDOMIDE [Suspect]
     Active Substance: POMALIDOMIDE
     Dosage: 84 MG
     Route: 048
     Dates: start: 20160702, end: 20160722
  6. POMALIDOMIDE [Suspect]
     Active Substance: POMALIDOMIDE
     Dosage: 84 MG
     Route: 048
     Dates: start: 20160318, end: 20160407
  7. POMALIDOMIDE [Suspect]
     Active Substance: POMALIDOMIDE
     Dosage: 4 MG, CYCLE 1; TIME INTERVAL: 1.33 D
     Route: 050
     Dates: start: 20160318, end: 20160407
  8. POMALIDOMIDE [Suspect]
     Active Substance: POMALIDOMIDE
     Dosage: 4 MG, CYCLE 3; TIME INTERVAL: 1.33 D
     Route: 050
     Dates: start: 20160513, end: 20160520
  9. POMALIDOMIDE [Suspect]
     Active Substance: POMALIDOMIDE
     Dosage: 4 MG, CYCLE 4; TIME INTERVAL: 1.33 D
     Route: 050
     Dates: start: 20160702, end: 20160722

REACTIONS (3)
  - Diabetic hyperosmolar coma [Fatal]
  - Neutropenia [Recovered/Resolved]
  - Hyperglycaemic hyperosmolar nonketotic syndrome [Recovered/Resolved]

NARRATIVE: CASE EVENT DATE: 20160520
